FAERS Safety Report 9026609 (Version 1)
Quarter: 2013Q1

REPORT INFORMATION
  Report Type: Spontaneous
  Country: DE (occurrence: DE)
  Receive Date: 20130123
  Receipt Date: 20130123
  Transmission Date: 20140127
  Serious: Yes (Other)
  Sender: FDA-Public Use
  Company Number: PHHY2013DE005501

PATIENT
  Age: 47 Year
  Sex: Female

DRUGS (2)
  1. GLIVEC [Suspect]
     Indication: CHRONIC MYELOID LEUKAEMIA
     Dosage: 400 MG, DAILY
     Dates: start: 20121031, end: 20121220
  2. GLIVEC [Suspect]
     Dosage: 300 MG, DAILY
     Dates: start: 20121227

REACTIONS (10)
  - Vaginal disorder [Unknown]
  - Vaginal haemorrhage [Recovered/Resolved]
  - Arthropathy [Recovering/Resolving]
  - Oedema [Recovering/Resolving]
  - Rash [Unknown]
  - Nausea [Recovering/Resolving]
  - Platelet count decreased [Recovered/Resolved]
  - Anaemia [Unknown]
  - White blood cell count decreased [Recovering/Resolving]
  - Neutrophil count decreased [Recovering/Resolving]
